FAERS Safety Report 14497663 (Version 3)
Quarter: 2018Q1

REPORT INFORMATION
  Report Type: Spontaneous
  Country: US (occurrence: US)
  Receive Date: 20180207
  Receipt Date: 20180326
  Transmission Date: 20180509
  Serious: Yes (Other)
  Sender: FDA-Public Use
  Company Number: PHEH2018US004240

PATIENT
  Sex: Female

DRUGS (1)
  1. ILEVRO [Suspect]
     Active Substance: NEPAFENAC
     Indication: RETINAL DETACHMENT
     Dosage: 1 GTT, QD
     Route: 047

REACTIONS (3)
  - Product use in unapproved indication [Unknown]
  - Liquid product physical issue [Unknown]
  - Retinitis [Unknown]
